FAERS Safety Report 10658252 (Version 1)
Quarter: 2014Q4

REPORT INFORMATION
  Report Type: Spontaneous
  Country: US (occurrence: US)
  Receive Date: 20141217
  Receipt Date: 20141217
  Transmission Date: 20150529
  Serious: No
  Sender: FDA-Public Use
  Company Number: US-GLAXOSMITHKLINE-A1061908A

PATIENT

DRUGS (5)
  1. VOTRIENT [Suspect]
     Active Substance: PAZOPANIB HYDROCHLORIDE
     Indication: SARCOMA
     Route: 048
     Dates: start: 201310
  2. LOSARTAN [Concomitant]
     Active Substance: LOSARTAN
  3. HYDROCODONE [Concomitant]
     Active Substance: HYDROCODONE
  4. METOPROLOL [Concomitant]
     Active Substance: METOPROLOL
  5. TYLENOL [Concomitant]
     Active Substance: ACETAMINOPHEN

REACTIONS (12)
  - Weight decreased [Unknown]
  - Retching [Unknown]
  - Decreased appetite [Unknown]
  - Personality change [Unknown]
  - Off label use [Unknown]
  - Dysgeusia [Unknown]
  - Oral pain [Unknown]
  - Dehydration [Unknown]
  - Pain [Unknown]
  - Hair colour changes [Unknown]
  - Bradyphrenia [Unknown]
  - Nausea [Unknown]

NARRATIVE: CASE EVENT DATE: 201401
